FAERS Safety Report 8278985-5 (Version None)
Quarter: 2012Q2

REPORT INFORMATION
  Report Type: 
  Country: None (occurrence: None)
  Receive Date: 20120412
  Receipt Date: 20110708
  Transmission Date: 20120825
  Serious: No
  Sender: FDA-Public Use
  Company Number: US-ASTRAZENECA-2011SE40769

PATIENT
  Sex: Female

DRUGS (4)
  1. NEXIUM [Suspect]
     Route: 048
  2. CLARITHROMYCIN [Concomitant]
  3. NEXIUM [Suspect]
     Indication: HELICOBACTER GASTRITIS
     Route: 048
     Dates: start: 20110701
  4. AMOXICILLIN [Concomitant]

REACTIONS (2)
  - URTICARIA [None]
  - INCORRECT DOSE ADMINISTERED [None]
